FAERS Safety Report 5231615-9 (Version None)
Quarter: 2007Q1

REPORT INFORMATION
  Report Type: 
  Country: None (occurrence: None)
  Receive Date: 20070202
  Receipt Date: 20070124
  Transmission Date: 20070707
  Serious: Yes (Other)
  Sender: FDA-Public Use
  Company Number: 2007SP001575

PATIENT
  Age: 59 Year
  Sex: Male
  Weight: 119.7496 kg

DRUGS (2)
  1. PEG-INTRON [Suspect]
     Indication: HEPATITIS C
     Dosage: SC
     Route: 058
     Dates: start: 20070110
  2. RIBAVIRIN [Suspect]
     Indication: HEPATITIS C
     Dosage: PO
     Route: 048
     Dates: start: 20070110

REACTIONS (13)
  - ABDOMINAL PAIN UPPER [None]
  - CHILLS [None]
  - DEHYDRATION [None]
  - DYSGEUSIA [None]
  - FATIGUE [None]
  - INJECTION SITE ERYTHEMA [None]
  - INSOMNIA [None]
  - IRRITABILITY [None]
  - ORAL INTAKE REDUCED [None]
  - PYREXIA [None]
  - STOMACH DISCOMFORT [None]
  - THIRST [None]
  - WEIGHT DECREASED [None]
